FAERS Safety Report 13672808 (Version 9)
Quarter: 2019Q2

REPORT INFORMATION
  Report Type: Report from Study
  Country: JP (occurrence: JP)
  Receive Date: 20170621
  Receipt Date: 20190522
  Transmission Date: 20190711
  Serious: Yes (Death, Hospitalization, Other)
  Sender: FDA-Public Use
  Company Number: JP-ARIAD PHARMACEUTICALS, INC-2017JP008396

PATIENT
  Age: 82 Year
  Sex: Female
  Weight: 33.8 kg

DRUGS (4)
  1. DASATINIB MONOHYDRATE [Concomitant]
     Active Substance: DASATINIB
     Indication: ACUTE LYMPHOCYTIC LEUKAEMIA
     Dosage: 40 MG, QD
     Route: 065
     Dates: start: 20170529, end: 20170602
  2. PONATINIB [Suspect]
     Active Substance: PONATINIB
     Dosage: 15 MG, QD
     Route: 048
     Dates: start: 20170613, end: 20170619
  3. PONATINIB [Suspect]
     Active Substance: PONATINIB
     Indication: ACUTE LYMPHOCYTIC LEUKAEMIA
     Dosage: 15 MG, QD
     Route: 048
     Dates: start: 20170607, end: 20170608
  4. PREDNISOLONE. [Concomitant]
     Active Substance: PREDNISOLONE
     Indication: ACUTE LYMPHOCYTIC LEUKAEMIA
     Dosage: UNK
     Route: 065
     Dates: start: 20170519, end: 20170622

REACTIONS (5)
  - Tumour lysis syndrome [Fatal]
  - Hyperamylasaemia [Recovered/Resolved]
  - Renal failure [Fatal]
  - Acute lymphocytic leukaemia [Fatal]
  - Infection [Fatal]

NARRATIVE: CASE EVENT DATE: 201706
